FAERS Safety Report 6690473-6 (Version None)
Quarter: 2010Q2

REPORT INFORMATION
  Report Type: 
  Country: None (occurrence: None)
  Receive Date: 20100421
  Receipt Date: 20100415
  Transmission Date: 20101027
  Serious: Yes (Hospitalization)
  Sender: FDA-Public Use
  Company Number: US-ELI_LILLY_AND_COMPANY-US201004002820

PATIENT
  Sex: Female

DRUGS (5)
  1. HUMALOG [Suspect]
     Indication: DIABETES MELLITUS
     Dosage: UNK, OTHER
     Dates: start: 20080101
  2. HUMALOG [Suspect]
     Dosage: UNK, OTHER
     Dates: start: 20100301
  3. HUMALOG [Suspect]
     Dosage: UNK, OTHER
     Dates: start: 20100301
  4. LANTUS [Concomitant]
     Indication: DIABETES MELLITUS
  5. NOVOLOG [Concomitant]

REACTIONS (2)
  - CORONARY ARTERY OCCLUSION [None]
  - DRUG PRESCRIBING ERROR [None]
